FAERS Safety Report 4600825-3 (Version None)
Quarter: 2005Q1

REPORT INFORMATION
  Report Type: 
  Country: None (occurrence: None)
  Receive Date: 20050304
  Receipt Date: 20050218
  Transmission Date: 20050727
  Serious: Yes (Death, Hospitalization)
  Sender: FDA-Public Use
  Company Number: 2005EU000303

PATIENT
  Age: 3 Year
  Sex: 0

DRUGS (5)
  1. PROGRAF [Suspect]
     Indication: LIVER TRANSPLANT
  2. PREDNISONE [Concomitant]
  3. MYCOPHENOLATE MOFETIL (MYCOPHENOLATE MOFETIL) [Concomitant]
  4. METHOTREXATE SODIUM [Concomitant]
  5. BASILIXIMAB (BASILIXIMAB) [Concomitant]

REACTIONS (9)
  - ACUTE RESPIRATORY DISTRESS SYNDROME [None]
  - ADENOVIRUS INFECTION [None]
  - CYSTITIS HAEMORRHAGIC [None]
  - DIARRHOEA [None]
  - GRAFT VERSUS HOST DISEASE [None]
  - MULTI-ORGAN FAILURE [None]
  - NEPHRITIS [None]
  - PNEUMONIA [None]
  - SEPSIS [None]
